FAERS Safety Report 13551753 (Version 1)
Quarter: 2017Q2

REPORT INFORMATION
  Report Type: Report from Study
  Country: US (occurrence: US)
  Receive Date: 20170516
  Receipt Date: 20170516
  Transmission Date: 20170830
  Serious: No
  Sender: FDA-Public Use
  Company Number: PHEH2017US014542

PATIENT
  Age: 27 Year

DRUGS (1)
  1. COSENTYX [Suspect]
     Active Substance: SECUKINUMAB
     Indication: MALAISE
     Dosage: 300 MG, QW
     Route: 030
     Dates: start: 20170427

REACTIONS (3)
  - Product use in unapproved indication [Unknown]
  - Viral upper respiratory tract infection [Recovering/Resolving]
  - Incorrect route of drug administration [Unknown]

NARRATIVE: CASE EVENT DATE: 20170427
